FAERS Safety Report 5202138-8 (Version None)
Quarter: 2007Q1

REPORT INFORMATION
  Report Type: 
  Country: None (occurrence: None)
  Receive Date: 20070109
  Receipt Date: 20070103
  Transmission Date: 20070707
  Serious: Yes (Other)
  Sender: FDA-Public Use
  Company Number: AU-AVENTIS-200710128US

PATIENT
  Age: 33 Year
  Sex: Female

DRUGS (2)
  1. CLOMIPHENE CITRATE [Suspect]
     Indication: OVULATION INDUCTION
     Dosage: DOSE: UP TO 150
  2. MEDROXYPROGESTERONE [Concomitant]
     Indication: WITHDRAWAL BLEED
     Dosage: DOSE: UNK

REACTIONS (3)
  - BLOOD CHOLESTEROL INCREASED [None]
  - HYPERTRIGLYCERIDAEMIA [None]
  - MIXED HYPERLIPIDAEMIA [None]
